FAERS Safety Report 15762796 (Version 5)
Quarter: 2019Q1

REPORT INFORMATION
  Report Type: Spontaneous
  Country: JP (occurrence: JP)
  Receive Date: 20181226
  Receipt Date: 20190322
  Transmission Date: 20190417
  Serious: Yes (Death, Life-Threatening, Hospitalization, Other)
  Sender: FDA-Public Use
  Company Number: JP-PFIZER INC-2018527924

PATIENT
  Age: 88 Year
  Sex: Female

DRUGS (4)
  1. AMLODIPINE BESILATE [Suspect]
     Active Substance: AMLODIPINE BESYLATE
     Dosage: UNK
     Route: 048
  2. CANDESARTAN. [Concomitant]
     Active Substance: CANDESARTAN
     Dosage: UNK
     Route: 048
  3. TAMOXIFEN [Concomitant]
     Active Substance: TAMOXIFEN
     Dosage: UNK
     Route: 048
  4. DONEPEZIL HCL [Suspect]
     Active Substance: DONEPEZIL HYDROCHLORIDE
     Dosage: UNK
     Route: 048

REACTIONS (7)
  - Fall [Fatal]
  - Pulmonary hypertension [Fatal]
  - Cerebral haemorrhage [Fatal]
  - Contusion [Fatal]
  - Cardio-respiratory arrest [Fatal]
  - Acute kidney injury [Fatal]
  - Pulmonary embolism [Fatal]
